FAERS Safety Report 5286725-7 (Version None)
Quarter: 2007Q1

REPORT INFORMATION
  Report Type: 
  Country: None (occurrence: None)
  Receive Date: 20070329
  Receipt Date: 20070314
  Transmission Date: 20070707
  Serious: Yes (Hospitalization)
  Sender: FDA-Public Use
  Company Number: 6030432

PATIENT
  Age: 47 Year
  Sex: Female

DRUGS (6)
  1. LEVOTHYROX 75 (TABLET) (LEVOTHYROXINA SODIUM) [Suspect]
     Indication: THYROIDITIS
     Dosage: 75 MCG (75 MCG, 1 IN 1 D) ORAL
     Route: 048
  2. SOLU-MEDROL [Suspect]
     Indication: POLYARTHRITIS
     Dosage: 100 MG (100 MG, 1 IN 1 TOTAL) INTRAVENOUS
     Route: 042
     Dates: start: 20070116, end: 20070116
  3. MABTHERA (SOLUTION FOR INJECTION) (RITUXIMAB) [Suspect]
     Indication: POLYARTHRITIS
     Dosage: 1 GM (1 GM, 1 IN 1 TOTAL) INTRAVENOUS
     Route: 042
     Dates: start: 20070116, end: 20070116
  4. PREDNISONE [Suspect]
     Indication: POLYARTHRITIS
     Dosage: 10 MG (10 MG, 1 IN 1 D) ORAL
     Route: 048
     Dates: start: 20040101
  5. POLARAMINE (SOLUTION FOR INJECTION) (DEXCHLORPHENIRAMINE MALEATE) [Suspect]
     Dosage: 1 DOSAGE FORMS (1 DOSAGE FORMS, 1 IN 1 D) INTRAVENOUS
     Route: 042
     Dates: start: 20070116, end: 20070116
  6. CLARADOL (TABLET) (PARACETAMOL) [Suspect]
     Indication: DRUG USE FOR UNKNOWN INDICATION
     Dosage: 4 GM (1 GM, 4 IN 1 D) ORAL
     Route: 048
     Dates: start: 20050202

REACTIONS (3)
  - GINGIVAL BLEEDING [None]
  - NEUTROPENIA [None]
  - WHITE BLOOD CELL COUNT DECREASED [None]
